FAERS Safety Report 17015881 (Version 3)
Quarter: 2020Q1

REPORT INFORMATION
  Report Type: Spontaneous
  Country: US (occurrence: US)
  Receive Date: 20191111
  Receipt Date: 20200210
  Transmission Date: 20200409
  Serious: No
  Sender: FDA-Public Use
  Company Number: US-JNJFOC-20191101310

PATIENT
  Age: 57 Year
  Sex: Female
  Weight: 86.26 kg

DRUGS (5)
  1. LAMICTAL [Concomitant]
     Active Substance: LAMOTRIGINE
     Indication: DEPRESSION
  2. SEROQUEL [Concomitant]
     Active Substance: QUETIAPINE FUMARATE
     Indication: DEPRESSION
     Dates: start: 1999
  3. AMITRIPTYLINE [Concomitant]
     Active Substance: AMITRIPTYLINE
     Indication: DEPRESSION
     Dates: start: 2004
  4. TREMFYA [Suspect]
     Active Substance: GUSELKUMAB
     Route: 058
     Dates: start: 201906
  5. TREMFYA [Suspect]
     Active Substance: GUSELKUMAB
     Indication: PSORIASIS
     Dosage: STARTED FEW YEARS BACK AND STOPPED ON AN UNSPECIFIED DATE, RESTARTED IN JUN-2019
     Route: 058

REACTIONS (4)
  - Myopia [Not Recovered/Not Resolved]
  - Inappropriate schedule of product administration [Unknown]
  - Accidental exposure to product [Unknown]
  - Injection site haemorrhage [Unknown]

NARRATIVE: CASE EVENT DATE: 2019
